FAERS Safety Report 20824742 (Version 4)
Quarter: 2022Q4

REPORT INFORMATION
  Report Type: Report from Study
  Country: US (occurrence: None)
  Receive Date: 20220513
  Receipt Date: 20221117
  Transmission Date: 20230113
  Serious: No
  Sender: FDA-Public Use
  Company Number: US-ROCHE-3094611

PATIENT
  Age: 68 Year
  Sex: Female
  Weight: 86.7 kg

DRUGS (3)
  1. ATEZOLIZUMAB [Suspect]
     Active Substance: ATEZOLIZUMAB
     Indication: Breast cancer
     Route: 041
     Dates: start: 20220324, end: 20220324
  2. OLAPARIB [Suspect]
     Active Substance: OLAPARIB
     Indication: Breast cancer
     Route: 048
  3. OLAPARIB [Suspect]
     Active Substance: OLAPARIB
     Dosage: TOTAL DOSE: 12600 MG
     Route: 048
     Dates: end: 20220413

REACTIONS (3)
  - Hepatitis [Recovering/Resolving]
  - Aspartate aminotransferase increased [Recovering/Resolving]
  - Alanine aminotransferase increased [Recovering/Resolving]

NARRATIVE: CASE EVENT DATE: 20220413
